FAERS Safety Report 16198967 (Version 2)
Quarter: 2020Q1

REPORT INFORMATION
  Report Type: Spontaneous
  Country: GB (occurrence: GB)
  Receive Date: 20190415
  Receipt Date: 20200110
  Transmission Date: 20200409
  Serious: Yes (Other)
  Sender: FDA-Public Use
  Company Number: GB-MYLANLABS-2019M1035168

PATIENT
  Age: 66 Year
  Sex: Male

DRUGS (2)
  1. AZATHIOPRINE. [Suspect]
     Active Substance: AZATHIOPRINE
     Indication: IMMUNOSUPPRESSION
     Dosage: UNK
     Route: 048
  2. ACITRETIN. [Suspect]
     Active Substance: ACITRETIN
     Indication: ECZEMA
     Dosage: UNK
     Route: 048

REACTIONS (1)
  - Pancreatitis [Recovered/Resolved]
